FAERS Safety Report 25001799 (Version 1)
Quarter: 2025Q1

REPORT INFORMATION
  Report Type: Spontaneous
  Country: CN (occurrence: CN)
  Receive Date: 20250224
  Receipt Date: 20250224
  Transmission Date: 20250409
  Serious: Yes (Disabling, Other)
  Sender: NOVO NORDISK
  Company Number: CN-NOVOPROD-1370207

PATIENT
  Age: 70 Year
  Sex: Female
  Weight: 40 kg

DRUGS (2)
  1. NOVORAPID [Suspect]
     Active Substance: INSULIN ASPART
     Indication: Latent autoimmune diabetes in adults
  2. ACARBOSE [Concomitant]
     Active Substance: ACARBOSE
     Indication: Latent autoimmune diabetes in adults

REACTIONS (4)
  - Fall [Unknown]
  - Fracture [Unknown]
  - Pain [Unknown]
  - Hypoglycaemia [Unknown]
